FAERS Safety Report 10622861 (Version 3)
Quarter: 2015Q1

REPORT INFORMATION
  Report Type: Spontaneous
  Country: US (occurrence: US)
  Receive Date: 20141203
  Receipt Date: 20150113
  Transmission Date: 20150720
  Serious: Yes (Hospitalization, Other)
  Sender: FDA-Public Use
  Company Number: US-ELI_LILLY_AND_COMPANY-US201412000193

PATIENT
  Age: 70 Year
  Sex: Female
  Weight: 61.68 kg

DRUGS (1)
  1. HUMALOG [Suspect]
     Active Substance: INSULIN LISPRO
     Indication: PRODUCT USED FOR UNKNOWN INDICATION
     Dosage: UNK
     Route: 058

REACTIONS (3)
  - Blood glucose decreased [Unknown]
  - Fall [Unknown]
  - Hypoglycaemia unawareness [Not Recovered/Not Resolved]

NARRATIVE: CASE EVENT DATE: 20141124
